FAERS Safety Report 5526903-2 (Version None)
Quarter: 2007Q4

REPORT INFORMATION
  Report Type: 
  Country: None (occurrence: None)
  Receive Date: 20071127
  Receipt Date: 20071115
  Transmission Date: 20080405
  Serious: Yes (Life-Threatening, Hospitalization, Other)
  Sender: FDA-Public Use
  Company Number: JP-PFIZER INC-2007091376

PATIENT
  Age: 75 Year
  Sex: Female

DRUGS (1)
  1. CABERGOLINE [Suspect]
     Route: 048

REACTIONS (2)
  - CARDIAC FAILURE [None]
  - INTERSTITIAL LUNG DISEASE [None]
